FAERS Safety Report 8345856-5 (Version None)
Quarter: 2012Q2

REPORT INFORMATION
  Report Type: 
  Country: None (occurrence: None)
  Receive Date: 20120509
  Receipt Date: 20120430
  Transmission Date: 20120825
  Serious: No
  Sender: FDA-Public Use
  Company Number: US-BIOGENIDEC-2012BI005049

PATIENT
  Age: 40 Year
  Sex: Male

DRUGS (1)
  1. TYSABRI [Suspect]
     Indication: MULTIPLE SCLEROSIS
     Route: 042
     Dates: start: 20120126

REACTIONS (16)
  - RHINORRHOEA [None]
  - CONDITION AGGRAVATED [None]
  - IMMUNE SYSTEM DISORDER [None]
  - MEMORY IMPAIRMENT [None]
  - CHILLS [None]
  - BACK DISORDER [None]
  - SPINAL DISORDER [None]
  - NECK PAIN [None]
  - HYPOAESTHESIA [None]
  - PAIN IN EXTREMITY [None]
  - SKIN DISORDER [None]
  - WEIGHT FLUCTUATION [None]
  - HEADACHE [None]
  - ASTHENIA [None]
  - PARAESTHESIA [None]
  - PAIN [None]
